FAERS Safety Report 5408342-8 (Version None)
Quarter: 2007Q3

REPORT INFORMATION
  Report Type: 
  Country: None (occurrence: None)
  Receive Date: 20070806
  Receipt Date: 20070806
  Transmission Date: 20080115
  Serious: Yes (Other)
  Sender: FDA-Public Use
  Company Number: None

PATIENT
  Sex: Male
  Weight: 81.6475 kg

DRUGS (3)
  1. ALPRAZOLAM EXTENDED-RELEASE [Suspect]
     Indication: ANXIETY DISORDER
     Dosage: 1 MG ONCE PO QDAY
     Route: 048
  2. LEXAPRO [Concomitant]
  3. AMBIEN [Concomitant]

REACTIONS (4)
  - DIZZINESS [None]
  - NAUSEA [None]
  - PHARMACEUTICAL PRODUCT COMPLAINT [None]
  - VERTIGO [None]
